FAERS Safety Report 23574269 (Version 5)
Quarter: 2024Q2

REPORT INFORMATION
  Report Type: Spontaneous
  Country: US (occurrence: US)
  Receive Date: 20240228
  Receipt Date: 20240628
  Transmission Date: 20240716
  Serious: Yes (Hospitalization)
  Sender: FDA-Public Use
  Company Number: US-TEVA-VS-3158359

PATIENT
  Age: 57 Year
  Sex: Male
  Weight: 81.65 kg

DRUGS (17)
  1. AJOVY [Suspect]
     Active Substance: FREMANEZUMAB-VFRM
     Indication: Migraine
     Route: 065
     Dates: end: 2023
  2. TESTOSTERONE [Concomitant]
     Active Substance: TESTOSTERONE
  3. Cyanocobalamin B12 [Concomitant]
  4. VITAMIN D3 [Concomitant]
     Active Substance: CHOLECALCIFEROL
  5. ZINC [Concomitant]
     Active Substance: PYRITHIONE ZINC\ZINC\ZINC CHLORIDE
     Dosage: AT BED TIME
  6. SYNTHROID [Concomitant]
     Active Substance: LEVOTHYROXINE SODIUM
     Dosage: 50 MCG EVERY MORNING
  7. ESOMEPRAZOLE [Concomitant]
     Active Substance: ESOMEPRAZOLE
     Dosage: EVERY MORNING
  8. VALSARTAN [Concomitant]
     Active Substance: VALSARTAN
  9. NEBIVOLOL [Concomitant]
     Active Substance: NEBIVOLOL
     Dosage: 5 MG DAILY
  10. ZOLOFT [Concomitant]
     Active Substance: SERTRALINE HYDROCHLORIDE
     Dosage: 100 MG DAILY
  11. ABILIFY [Concomitant]
     Active Substance: ARIPIPRAZOLE
     Dosage: 10 MG DAILY
  12. ADDERALL [Concomitant]
     Active Substance: AMPHETAMINE ASPARTATE\AMPHETAMINE SULFATE\DEXTROAMPHETAMINE SACCHARATE\DEXTROAMPHETAMINE SULFATE
     Dosage: 1 TABLET TWICE DAILY
  13. SOMA [Concomitant]
     Active Substance: CARISOPRODOL
     Dosage: TIME INTERVAL: 0.33333333 DAYS
  14. BUSPIRONE [Concomitant]
     Active Substance: BUSPIRONE HYDROCHLORIDE
     Dosage: TIME INTERVAL: 0.33333333 DAYS: 3 TABLETS DAILY
  15. KLONOPIN [Concomitant]
     Active Substance: CLONAZEPAM
     Dosage: TIME INTERVAL: 0.33333333 DAYS
  16. DIVALPROEX SODIUM [Concomitant]
     Active Substance: DIVALPROEX SODIUM
     Dosage: 500 MG 2 TABLETS DAILY
  17. FENTANYL [Suspect]
     Active Substance: FENTANYL\FENTANYL CITRATE
     Indication: Product used for unknown indication
     Route: 065

REACTIONS (8)
  - Drug dependence [Unknown]
  - Migraine [Unknown]
  - Head injury [Unknown]
  - Weight decreased [Recovered/Resolved]
  - Feeling abnormal [Recovered/Resolved]
  - Contusion [Unknown]
  - Fear of injection [Unknown]
  - Product supply issue [Unknown]

NARRATIVE: CASE EVENT DATE: 20230101
